FAERS Safety Report 16624524 (Version 3)
Quarter: 2025Q1

REPORT INFORMATION
  Report Type: Report from Study
  Country: DE (occurrence: DE)
  Receive Date: 20190724
  Receipt Date: 20250211
  Transmission Date: 20250408
  Serious: Yes (Other)
  Sender: KYOWA
  Company Number: DE-KYOWAKIRIN-2019BKK011734

PATIENT

DRUGS (2)
  1. BUROSUMAB [Suspect]
     Active Substance: BUROSUMAB
     Indication: Hereditary hypophosphataemic rickets
     Route: 058
     Dates: start: 20190718
  2. BUROSUMAB [Suspect]
     Active Substance: BUROSUMAB
     Route: 058
     Dates: start: 20171108

REACTIONS (1)
  - Nephrocalcinosis [Recovered/Resolved]
